FAERS Safety Report 8094964 (Version 2)
Quarter: 2013Q2

REPORT INFORMATION
  Report Type: Report from Study
  Country: FR (occurrence: FR)
  Receive Date: 20110817
  Receipt Date: 20130613
  Transmission Date: 20140414
  Serious: Yes (Hospitalization)
  Sender: FDA-Public Use
  Company Number: FR-ROCHE-796512

PATIENT
  Age: 59 Year
  Sex: Female

DRUGS (10)
  1. TOCILIZUMAB [Suspect]
     Indication: RHEUMATOID ARTHRITIS
     Route: 042
     Dates: start: 201005, end: 20110622
  2. AMITRIPTYLINE [Suspect]
     Indication: PRODUCT USED FOR UNKNOWN INDICATION
     Route: 048
  3. METHOTREXATE [Suspect]
     Indication: RHEUMATOID ARTHRITIS
     Route: 048
  4. METHOTREXATE [Suspect]
     Route: 048
     Dates: start: 20110428, end: 20110702
  5. ALENDRONATE SODIUM [Suspect]
     Indication: PRODUCT USED FOR UNKNOWN INDICATION
     Route: 048
  6. METOPROLOL [Suspect]
     Indication: PRODUCT USED FOR UNKNOWN INDICATION
     Route: 048
  7. ESOMEPRAZOLE [Suspect]
     Indication: PRODUCT USED FOR UNKNOWN INDICATION
     Route: 048
  8. CORTANCYL [Concomitant]
  9. FOLIC ACID [Concomitant]
     Route: 065
  10. CALCIUM CARBONATE [Concomitant]

REACTIONS (3)
  - Lung disorder [Recovering/Resolving]
  - Pyrexia [Recovered/Resolved]
  - Dyspnoea [Recovering/Resolving]
